FAERS Safety Report 22060738 (Version 1)
Quarter: 2023Q1

REPORT INFORMATION
  Report Type: Spontaneous
  Country: US (occurrence: None)
  Receive Date: 20230303
  Receipt Date: 20230303
  Transmission Date: 20230417
  Serious: No
  Sender: FDA-Public Use
  Company Number: None

PATIENT
  Age: 77 Year
  Sex: Male
  Weight: 106.68 kg

DRUGS (29)
  1. CAPECITABINE [Suspect]
     Active Substance: CAPECITABINE
     Indication: Gastric cancer
     Dosage: FREQUENCY : TWICE A DAY;?
     Route: 048
  2. ASPIRIN [Concomitant]
  3. CARVEDILOL [Concomitant]
  4. DEXAMETHASONE [Concomitant]
  5. ENTRESTO [Concomitant]
     Active Substance: SACUBITRIL\VALSARTAN
  6. EPIPEN [Concomitant]
  7. FINASTERIDE [Concomitant]
  8. FUROSEMIDE [Concomitant]
  9. GLIMEPIRIDE [Concomitant]
  10. JARDIANCE [Concomitant]
  11. LASIX [Concomitant]
  12. LOMOTIL [Concomitant]
  13. LORAZEPAM [Concomitant]
  14. LOSARTAN [Concomitant]
  15. MAGNESIUM [Concomitant]
  16. GLUCONATE [Concomitant]
  17. METFORMIN [Concomitant]
  18. MULTIPLE VITAMINS [Concomitant]
  19. ONDANSETRON [Concomitant]
  20. PIOGLITAZONE [Concomitant]
  21. SIMVASTATIN [Concomitant]
  22. SPIRONOLACTONE [Concomitant]
  23. TRAZODONE [Concomitant]
  24. VITAMIN A [Concomitant]
  25. VITAMIN B12 [Concomitant]
  26. VITAMIN B6 [Concomitant]
  27. VITAMIN C [Concomitant]
  28. VITAMIN E [Concomitant]
     Active Substance: .ALPHA.-TOCOPHEROL
  29. ZOFRAN [Concomitant]

REACTIONS (2)
  - Palmar-plantar erythrodysaesthesia syndrome [None]
  - Oral disorder [None]
